FAERS Safety Report 8574123-X (Version None)
Quarter: 2012Q3

REPORT INFORMATION
  Report Type: 
  Country: None (occurrence: None)
  Receive Date: 20120806
  Receipt Date: 20120801
  Transmission Date: 20120928
  Serious: Yes (Death, Other)
  Sender: FDA-Public Use
  Company Number: PHHY2012CA009912

PATIENT
  Sex: Female

DRUGS (4)
  1. AFINITOR [Suspect]
     Indication: PANCREATIC NEUROENDOCRINE TUMOUR METASTATIC
     Dosage: 10 MG, DAILY
     Route: 048
     Dates: start: 20111122, end: 20111219
  2. AFINITOR [Suspect]
     Dosage: 5 MG, EVERY DAY
     Route: 048
     Dates: start: 20111220, end: 20120228
  3. AFINITOR [Suspect]
     Dosage: 10 MG EVERY OTHER DAY
     Route: 048
     Dates: start: 20120228, end: 20120305
  4. AFINITOR [Suspect]
     Dosage: 05 MG EVERY OTHER DAY
     Route: 048
     Dates: start: 20120229, end: 20120306

REACTIONS (9)
  - DEATH [None]
  - NEOPLASM PROGRESSION [None]
  - FATIGUE [None]
  - NEOPLASM MALIGNANT [None]
  - PLATELET COUNT DECREASED [None]
  - SLEEP DISORDER [None]
  - ABDOMINAL PAIN UPPER [None]
  - DRUG INEFFECTIVE [None]
  - DECREASED APPETITE [None]
